FAERS Safety Report 8367539-8 (Version None)
Quarter: 2012Q2

REPORT INFORMATION
  Report Type: 
  Country: None (occurrence: None)
  Receive Date: 20120517
  Receipt Date: 20120511
  Transmission Date: 20120825
  Serious: Yes (Hospitalization, Other)
  Sender: FDA-Public Use
  Company Number: JP-PFIZER INC-2012106930

PATIENT
  Age: 35 Year
  Sex: Female

DRUGS (4)
  1. CARBAMAZEPINE [Interacting]
     Dosage: 200MG/DAY
     Route: 048
  2. CARBAMAZEPINE [Interacting]
     Indication: EPILEPSY
     Dosage: 600MG/DAY
     Route: 048
  3. CYCLOPHOSPHAMIDE [Concomitant]
     Indication: MULTIPLE SCLEROSIS
     Dosage: 1500 MG/DAY
     Route: 041
  4. SOLU-MEDROL [Suspect]
     Indication: MULTIPLE SCLEROSIS
     Dosage: 1 G, 3X/DAY
     Route: 041
     Dates: start: 20120427, end: 20120429

REACTIONS (4)
  - ANTICONVULSANT DRUG LEVEL ABNORMAL [None]
  - COGNITIVE DISORDER [None]
  - TREATMENT NONCOMPLIANCE [None]
  - DRUG INTERACTION [None]
